FAERS Safety Report 25760272 (Version 1)
Quarter: 2025Q3

REPORT INFORMATION
  Report Type: Report from Study
  Country: US (occurrence: US)
  Receive Date: 20250904
  Receipt Date: 20250904
  Transmission Date: 20251020
  Serious: Yes (Hospitalization)
  Sender: EISAI
  Company Number: US-Eisai-EC-2025-195978

PATIENT
  Age: 63 Year
  Sex: Male
  Weight: 78.02 kg

DRUGS (13)
  1. LENVIMA [Suspect]
     Active Substance: LENVATINIB
     Indication: Hepatic cancer
     Route: 048
     Dates: start: 20250616, end: 20250825
  2. ATORVASTATIN CALCIUM [Concomitant]
     Active Substance: ATORVASTATIN CALCIUM
  3. CETIRIZINE HYDROCHLORIDE [Concomitant]
     Active Substance: CETIRIZINE HYDROCHLORIDE
  4. IBUPROFEN [Concomitant]
     Active Substance: IBUPROFEN
  5. HYDROCHLOROTHIAZIDE [Concomitant]
     Active Substance: HYDROCHLOROTHIAZIDE
  6. JARDIANCE [Concomitant]
     Active Substance: EMPAGLIFLOZIN
  7. PERCOCET [Concomitant]
     Active Substance: ACETAMINOPHEN\OXYCODONE HYDROCHLORIDE
  8. PROMETHAZINE HYDROCHLORIDE [Concomitant]
     Active Substance: PROMETHAZINE HYDROCHLORIDE
  9. TESTOSTERONE CYPIONATE [Concomitant]
     Active Substance: TESTOSTERONE CYPIONATE
  10. TYLENOL [Concomitant]
     Active Substance: ACETAMINOPHEN
  11. VITAMIN B12 [Concomitant]
     Active Substance: CYANOCOBALAMIN
  12. VITAMIN D- VITAMIN K [Concomitant]
  13. IMODIUM [Concomitant]
     Active Substance: LOPERAMIDE HYDROCHLORIDE

REACTIONS (2)
  - Diarrhoea [Not Recovered/Not Resolved]
  - Dehydration [Recovered/Resolved]

NARRATIVE: CASE EVENT DATE: 20250101
